FAERS Safety Report 5488632-3 (Version None)
Quarter: 2007Q4

REPORT INFORMATION
  Report Type: 
  Country: None (occurrence: None)
  Receive Date: 20071017
  Receipt Date: 20060925
  Transmission Date: 20080405
  Serious: No
  Sender: FDA-Public Use
  Company Number: A0621287A

PATIENT
  Age: 7 Year
  Sex: Female

DRUGS (4)
  1. CEFTIN [Suspect]
     Indication: OTITIS MEDIA ACUTE
     Dosage: 250MG TWICE PER DAY
     Route: 048
     Dates: start: 20060917
  2. ZYRTEC [Concomitant]
  3. AMOXICILLIN [Concomitant]
  4. PYRILAFEN TANNATE [Concomitant]

REACTIONS (4)
  - DRUG DISPENSING ERROR [None]
  - NAUSEA [None]
  - PHARMACEUTICAL PRODUCT COMPLAINT [None]
  - VOMITING [None]
